FAERS Safety Report 18648426 (Version 2)
Quarter: 2020Q4

REPORT INFORMATION
  Report Type: Report from Study
  Country: None (occurrence: BE)
  Receive Date: 20201222
  Receipt Date: 20201228
  Transmission Date: 20210114
  Serious: Yes (Hospitalization, Other)
  Sender: FDA-Public Use
  Company Number: BE-ABBVIE-20K-013-3696158-00

PATIENT
  Age: 78 Year
  Sex: Male
  Weight: 69 kg

DRUGS (4)
  1. PROLOPA [Concomitant]
     Active Substance: BENSERAZIDE\LEVODOPA
     Indication: PARKINSON^S DISEASE
     Dosage: FORM STRENGTH: 100MG/25MG; UNIT DOSE: 2 CAPSULES?PROLOPA 125 HBS
     Route: 048
  2. AZILECT [Concomitant]
     Active Substance: RASAGILINE MESYLATE
     Indication: PARKINSON^S DISEASE
     Route: 048
  3. DUODOPA [Suspect]
     Active Substance: CARBIDOPA\LEVODOPA
     Indication: PARKINSON^S DISEASE
     Dosage: UNKNOWN DOSAGES
     Route: 050
     Dates: start: 20150803, end: 20200509
  4. DUODOPA [Suspect]
     Active Substance: CARBIDOPA\LEVODOPA
     Dosage: MD= 5.0 ML, CD= 1.4 ML/HR DURING 16HRS, ED= 1.0 ML
     Route: 050
     Dates: start: 20200509

REACTIONS (6)
  - Spinal column injury [Unknown]
  - Communication disorder [Unknown]
  - Unevaluable event [Unknown]
  - Sepsis [Recovering/Resolving]
  - Paraplegia [Unknown]
  - Dysstasia [Unknown]
